FAERS Safety Report 10489253 (Version 3)
Quarter: 2014Q4

REPORT INFORMATION
  Report Type: Spontaneous
  Country: JP (occurrence: JP)
  Receive Date: 20141002
  Receipt Date: 20141209
  Transmission Date: 20150528
  Serious: Yes (Death, Hospitalization, Other)
  Sender: FDA-Public Use
  Company Number: JP-JNJFOC-20140924412

PATIENT
  Age: 41 Year
  Sex: Male

DRUGS (16)
  1. LUNESTA [Suspect]
     Active Substance: ESZOPICLONE
     Indication: INSOMNIA
     Route: 048
     Dates: start: 20130731
  2. LEVOTOMIN [Suspect]
     Active Substance: LEVOMEPROMAZINE
     Indication: SCHIZOPHRENIA
     Route: 048
     Dates: start: 20140917, end: 20140921
  3. LEVOTOMIN [Suspect]
     Active Substance: LEVOMEPROMAZINE
     Indication: SCHIZOPHRENIA
     Route: 048
     Dates: start: 20131218
  4. LEVOTOMIN [Suspect]
     Active Substance: LEVOMEPROMAZINE
     Indication: INSOMNIA
     Dosage: AS AND WHEN NECESSARY (P.R.N)
     Route: 048
     Dates: end: 20140917
  5. ZYPREXA [Suspect]
     Active Substance: OLANZAPINE
     Indication: SCHIZOPHRENIA
     Route: 048
     Dates: start: 20130925, end: 20140916
  6. EVAMYL [Suspect]
     Active Substance: LORMETAZEPAM
     Indication: INSOMNIA
     Route: 048
     Dates: start: 20120606
  7. LEVOTOMIN [Suspect]
     Active Substance: LEVOMEPROMAZINE
     Indication: INSOMNIA
     Route: 048
     Dates: start: 20140917, end: 20140921
  8. LEVOTOMIN [Suspect]
     Active Substance: LEVOMEPROMAZINE
     Indication: INSOMNIA
     Route: 048
     Dates: start: 20131218
  9. RILMAZAFONE [Suspect]
     Active Substance: RILMAZAFONE
     Indication: INSOMNIA
     Route: 048
     Dates: start: 20130911, end: 20140921
  10. ZYPREXA [Suspect]
     Active Substance: OLANZAPINE
     Indication: SCHIZOPHRENIA
     Route: 048
     Dates: start: 20140917, end: 20140921
  11. NITRAZEPAM [Suspect]
     Active Substance: NITRAZEPAM
     Indication: INSOMNIA
     Route: 048
     Dates: start: 20130213, end: 20140921
  12. XEPLION [Suspect]
     Active Substance: PALIPERIDONE PALMITATE
     Indication: SCHIZOPHRENIA
     Route: 030
     Dates: start: 20140917
  13. XEPLION [Suspect]
     Active Substance: PALIPERIDONE PALMITATE
     Indication: SCHIZOPHRENIA
     Route: 030
     Dates: start: 20140108, end: 20140916
  14. LEVOTOMIN [Suspect]
     Active Substance: LEVOMEPROMAZINE
     Indication: SCHIZOPHRENIA
     Dosage: AS AND WHEN NECESSARY (P.R.N)
     Route: 048
     Dates: end: 20140917
  15. ROZEREM [Suspect]
     Active Substance: RAMELTEON
     Indication: INSOMNIA
     Route: 048
     Dates: start: 20140305, end: 20140921
  16. QUAZEPAM. [Suspect]
     Active Substance: QUAZEPAM
     Indication: INSOMNIA
     Route: 048
     Dates: start: 20130313, end: 20140921

REACTIONS (7)
  - Death [Fatal]
  - Depressed mood [Unknown]
  - Haemorrhage [Unknown]
  - Aspiration [Unknown]
  - Contusion [Unknown]
  - Road traffic accident [Unknown]
  - Fall [Unknown]

NARRATIVE: CASE EVENT DATE: 201409
